FAERS Safety Report 5485174-6 (Version None)
Quarter: 2007Q4

REPORT INFORMATION
  Report Type: 
  Country: None (occurrence: None)
  Receive Date: 20071011
  Receipt Date: 20070927
  Transmission Date: 20080405
  Serious: Yes (Hospitalization)
  Sender: FDA-Public Use
  Company Number: US-JNJFOC-20070903698

PATIENT
  Age: 67 Year
  Sex: Female
  Weight: 88.9 kg

DRUGS (1)
  1. DECITABINE (DECITABINE) LYOPHILIZED POWDER [Suspect]
     Indication: MYELOFIBROSIS
     Dosage: 0.3 MG/KG, 1 IN 1 DAY, SUBCUTANEOUS
     Route: 058
     Dates: start: 20070709, end: 20070901

REACTIONS (8)
  - ACUTE FEBRILE NEUTROPHILIC DERMATOSIS [None]
  - FALL [None]
  - HAEMATOMA [None]
  - HEAD INJURY [None]
  - HYPOXIA [None]
  - PULMONARY OEDEMA [None]
  - RESPIRATORY FAILURE [None]
  - THROMBOCYTOPENIA [None]
